FAERS Safety Report 4648564-7 (Version None)
Quarter: 2005Q2

REPORT INFORMATION
  Report Type: 
  Country: None (occurrence: None)
  Receive Date: 20050429
  Receipt Date: 20050420
  Transmission Date: 20051028
  Serious: Yes (Hospitalization)
  Sender: FDA-Public Use
  Company Number: US-JNJFOC-20050405808

PATIENT
  Age: 70 Year
  Sex: Female

DRUGS (15)
  1. TYLENOL (CAPLET) [Suspect]
     Route: 049
  2. TYLENOL (CAPLET) [Suspect]
     Route: 049
  3. DEPAKOTE [Concomitant]
     Route: 049
  4. LASIX [Concomitant]
     Route: 049
  5. ZETIA [Concomitant]
     Route: 049
  6. VICODIN [Concomitant]
  7. VICODIN [Concomitant]
  8. PREVACID [Concomitant]
     Route: 049
  9. CIPRO [Concomitant]
     Route: 049
  10. FOSAMAX [Concomitant]
  11. CARBIDOPA [Concomitant]
     Route: 049
  12. OSCAL [Concomitant]
     Route: 049
  13. ATENOLOL [Concomitant]
     Route: 049
  14. SYNTHROID [Concomitant]
     Route: 049
  15. ENALAPRIL [Concomitant]
     Route: 049

REACTIONS (1)
  - FAECES DISCOLOURED [None]
